FAERS Safety Report 7642408-7 (Version None)
Quarter: 2011Q3

REPORT INFORMATION
  Report Type: 
  Country: None (occurrence: None)
  Receive Date: 20110728
  Receipt Date: 20100823
  Transmission Date: 20111222
  Serious: No
  Sender: FDA-Public Use
  Company Number: US-MYLANLABS-2010S1015605

PATIENT
  Age: 51 Year
  Sex: Female

DRUGS (2)
  1. LEVOTHYROXINE SODIUM [Suspect]
     Route: 048
     Dates: start: 20100701
  2. LEVOTHYROXINE SODIUM [Suspect]
     Indication: HYPOTHYROIDISM
     Route: 048
     Dates: end: 20100701

REACTIONS (5)
  - FATIGUE [None]
  - COGNITIVE DISORDER [None]
  - DRUG EFFECT DECREASED [None]
  - FEELING COLD [None]
  - ALOPECIA [None]
